FAERS Safety Report 15453606 (Version 1)
Quarter: 2018Q4

REPORT INFORMATION
  Report Type: Spontaneous
  Country: JP (occurrence: US)
  Receive Date: 20181001
  Receipt Date: 20181001
  Transmission Date: 20190204
  Serious: No
  Sender: FDA-Public Use
  Company Number: JP-SUNOVION-2018SUN003749

PATIENT

DRUGS (2)
  1. LATUDA [Suspect]
     Active Substance: LURASIDONE HYDROCHLORIDE
     Indication: PRODUCT USED FOR UNKNOWN INDICATION
     Dosage: 80 MG, UNK
     Route: 048
  2. RIVOTRIL [Concomitant]
     Active Substance: CLONAZEPAM

REACTIONS (5)
  - Chest pain [Unknown]
  - Dizziness [Unknown]
  - Tachycardia [Unknown]
  - Dyspnoea [Unknown]
  - Hypotension [Unknown]
